FAERS Safety Report 25431719 (Version 1)
Quarter: 2025Q2

REPORT INFORMATION
  Report Type: Spontaneous
  Country: CN (occurrence: CN)
  Receive Date: 20250613
  Receipt Date: 20250613
  Transmission Date: 20250716
  Serious: Yes (Other)
  Sender: CSL BEHRING
  Company Number: CN-BEH-2025208941

PATIENT
  Age: 53 Year
  Sex: Male
  Weight: 75 kg

DRUGS (3)
  1. ALBURX [Suspect]
     Active Substance: ALBUMIN HUMAN
     Indication: Blood albumin abnormal
     Dosage: 10 G, OD
     Route: 041
     Dates: start: 20250524, end: 20250524
  2. ALBURX [Suspect]
     Active Substance: ALBUMIN HUMAN
     Route: 065
     Dates: start: 20250525
  3. ALBURX [Suspect]
     Active Substance: ALBUMIN HUMAN
     Route: 065
     Dates: start: 20250526

REACTIONS (7)
  - Red blood cell count decreased [Recovered/Resolved]
  - Haemoglobin decreased [Recovered/Resolved]
  - Dizziness [Unknown]
  - Headache [Unknown]
  - Blood pressure increased [Recovered/Resolved]
  - Blood pressure increased [Recovered/Resolved]
  - Dizziness [Recovered/Resolved]

NARRATIVE: CASE EVENT DATE: 20250501
